FAERS Safety Report 20535778 (Version 1)
Quarter: 2022Q1

REPORT INFORMATION
  Report Type: Other
  Country: GB (occurrence: None)
  Receive Date: 20220302
  Receipt Date: 20220302
  Transmission Date: 20220423
  Serious: Yes (Death)
  Sender: FDA-Public Use
  Company Number: GB-ROCHE-2251864

PATIENT
  Sex: Male

DRUGS (2)
  1. ESBRIET [Suspect]
     Active Substance: PIRFENIDONE
     Indication: Idiopathic pulmonary fibrosis
     Route: 048
     Dates: start: 201803
  2. ESBRIET [Suspect]
     Active Substance: PIRFENIDONE
     Dosage: 9 TABLETS DAILY
     Route: 065
     Dates: start: 20180411

REACTIONS (3)
  - Underdose [Unknown]
  - No adverse event [Unknown]
  - Death [Fatal]
